FAERS Safety Report 20139562 (Version 1)
Quarter: 2021Q4

REPORT INFORMATION
  Report Type: Spontaneous
  Country: CN (occurrence: CN)
  Receive Date: 20211202
  Receipt Date: 20211202
  Transmission Date: 20220303
  Serious: Yes (Hospitalization)
  Sender: FDA-Public Use
  Company Number: CN-PFIZER INC-202101630143

PATIENT
  Age: 71 Year
  Sex: Male

DRUGS (3)
  1. ATORVASTATIN CALCIUM [Suspect]
     Active Substance: ATORVASTATIN CALCIUM
     Indication: Subdural haematoma
     Dosage: 20 MG, 1X/DAY
     Dates: start: 20211105, end: 20211113
  2. VALPROIC ACID [Concomitant]
     Active Substance: VALPROIC ACID
     Indication: Prophylaxis
     Dosage: 0.500 G, 1X/DAY
     Dates: start: 20211107, end: 20211113
  3. CEFOPERAZONE SODIUM\SULBACTAM SODIUM [Concomitant]
     Active Substance: CEFOPERAZONE SODIUM\SULBACTAM SODIUM
     Indication: Infection
     Dosage: 3.000 G, 3X/DAY
     Route: 041
     Dates: start: 20211109, end: 20211113

REACTIONS (1)
  - Liver injury [Recovering/Resolving]

NARRATIVE: CASE EVENT DATE: 20211113
